FAERS Safety Report 6847384-2 (Version None)
Quarter: 2010Q3

REPORT INFORMATION
  Report Type: 
  Country: None (occurrence: None)
  Receive Date: 20100716
  Receipt Date: 20100702
  Transmission Date: 20110219
  Serious: Yes (Hospitalization, Other)
  Sender: FDA-Public Use
  Company Number: US-BAYER-200937374NA

PATIENT
  Age: 19 Year
  Sex: Female
  Weight: 106 kg

DRUGS (4)
  1. YASMIN [Suspect]
     Indication: PRODUCT USED FOR UNKNOWN INDICATION
     Dates: start: 20060907, end: 20061104
  2. ALBUTEROL [Concomitant]
  3. ZOLOFT [Concomitant]
  4. ATIVAN [Concomitant]

REACTIONS (5)
  - CHEST PAIN [None]
  - DYSPNOEA [None]
  - PAIN [None]
  - PAINFUL RESPIRATION [None]
  - PULMONARY EMBOLISM [None]
